FAERS Safety Report 6943439-2 (Version None)
Quarter: 2010Q3

REPORT INFORMATION
  Report Type: 
  Country: None (occurrence: None)
  Receive Date: 20100826
  Receipt Date: 20100820
  Transmission Date: 20110219
  Serious: Yes (Hospitalization, Other)
  Sender: FDA-Public Use
  Company Number: US-GILEAD-2010-0031299

PATIENT
  Sex: Male

DRUGS (17)
  1. LETAIRIS [Suspect]
     Indication: PULMONARY ARTERIAL HYPERTENSION
     Route: 048
     Dates: start: 20100618
  2. ASPIRIN [Concomitant]
  3. METOPROLOL [Concomitant]
  4. ISOSORBIDE MONONITRATE [Concomitant]
  5. CARDIZEM LA [Concomitant]
  6. SIMVASTATIN [Concomitant]
  7. ALBUTEROL [Concomitant]
  8. BUDESONIDE [Concomitant]
  9. GLIPIZIDE [Concomitant]
  10. PAXIL [Concomitant]
  11. PRILOSEC [Concomitant]
  12. DILANTIN [Concomitant]
  13. AVODART [Concomitant]
  14. ACETAMINOPHEN [Concomitant]
  15. PROCRIT [Concomitant]
  16. MULTI-VITAMIN [Concomitant]
  17. FOLIC ACID [Concomitant]

REACTIONS (2)
  - CONVULSION [None]
  - HAEMOGLOBIN DECREASED [None]
